FAERS Safety Report 7388346-9 (Version None)
Quarter: 2011Q2

REPORT INFORMATION
  Report Type: 
  Country: None (occurrence: None)
  Receive Date: 20110401
  Receipt Date: 20110321
  Transmission Date: 20111010
  Serious: Yes (Hospitalization, Other)
  Sender: FDA-Public Use
  Company Number: PHHY2011DE23352

PATIENT
  Sex: Female
  Weight: 57 kg

DRUGS (1)
  1. ZOMETA [Suspect]
     Indication: BONE DISORDER
     Dosage: 3.5 MG, EVERY 4 WEEKS
     Route: 042
     Dates: start: 20090402

REACTIONS (5)
  - DYSKINESIA [None]
  - ERYTHEMA [None]
  - OSTEONECROSIS OF JAW [None]
  - ABSCESS JAW [None]
  - SWELLING [None]
